FAERS Safety Report 11676115 (Version 2)
Quarter: 2016Q3

REPORT INFORMATION
  Report Type: Spontaneous
  Country: US (occurrence: US)
  Receive Date: 20151028
  Receipt Date: 20160810
  Transmission Date: 20161109
  Serious: Yes (Other)
  Sender: FDA-Public Use
  Company Number: PHEH2015US021450

PATIENT
  Age: 68 Year
  Sex: Female
  Weight: 78.1 kg

DRUGS (3)
  1. VOTRIENT [Suspect]
     Active Substance: PAZOPANIB HYDROCHLORIDE
     Indication: RENAL CELL CARCINOMA
     Dosage: 4 DF, QD
     Route: 048
     Dates: start: 201505
  2. VOTRIENT [Suspect]
     Active Substance: PAZOPANIB HYDROCHLORIDE
     Dosage: 200 MG, QD
     Route: 048
     Dates: start: 20160726
  3. VOTRIENT [Suspect]
     Active Substance: PAZOPANIB HYDROCHLORIDE
     Dosage: 200 MG, QD
     Route: 048
     Dates: start: 20150508

REACTIONS (5)
  - Nausea [Unknown]
  - Muscle spasms [Unknown]
  - Asthenia [Recovered/Resolved]
  - Abdominal discomfort [Unknown]
  - Sensitisation [Unknown]

NARRATIVE: CASE EVENT DATE: 201505
